FAERS Safety Report 10844833 (Version 2)
Quarter: 2015Q1

REPORT INFORMATION
  Report Type: Spontaneous
  Country: US (occurrence: US)
  Receive Date: 20150220
  Receipt Date: 20150310
  Transmission Date: 20150721
  Serious: Yes (Other)
  Sender: FDA-Public Use
  Company Number: US-PFIZER INC-2015059514

PATIENT
  Age: 57 Year
  Sex: Male

DRUGS (1)
  1. TORISEL [Suspect]
     Active Substance: TEMSIROLIMUS
     Indication: RENAL CELL CARCINOMA STAGE IV
     Dosage: 25 MG, WEEKLY
     Route: 042
     Dates: start: 201309

REACTIONS (1)
  - Renal disorder [Unknown]
